FAERS Safety Report 4808915-7 (Version None)
Quarter: 2005Q4

REPORT INFORMATION
  Report Type: 
  Country: None (occurrence: None)
  Receive Date: 20051024
  Receipt Date: 20051012
  Transmission Date: 20060501
  Serious: Yes (Hospitalization)
  Sender: FDA-Public Use
  Company Number: 2005-133590-NL

PATIENT
  Age: 85 Year
  Sex: Male

DRUGS (5)
  1. MIRTAZAPINE [Suspect]
     Indication: DEPRESSION
     Dosage: 15 MG, ORAL
     Route: 048
     Dates: start: 20030101, end: 20050909
  2. MOLSIDOMINE [Concomitant]
  3. RIVASTIGMINE [Concomitant]
  4. ZOLPIDEM [Concomitant]
  5. AMLODIPINE [Concomitant]

REACTIONS (2)
  - BLOOD BILIRUBIN INCREASED [None]
  - HEPATIC ENZYME INCREASED [None]
